FAERS Safety Report 9915734 (Version 1)
Quarter: 2014Q1

REPORT INFORMATION
  Report Type: Spontaneous
  Country: GB (occurrence: None)
  Receive Date: 20140218
  Receipt Date: 20140218
  Transmission Date: 20141002
  Serious: Yes (Other)
  Sender: FDA-Public Use
  Company Number: AUR-APL-2014-01587

PATIENT
  Age: 82 Year
  Sex: Female
  Weight: 86 kg

DRUGS (4)
  1. CLOPIDOGREL (CLOPIDOGREL) [Suspect]
     Indication: PRODUCT USED FOR UNKNOWN INDICATION
     Dates: start: 20131002
  2. CHLORPHENAMINE [Concomitant]
  3. CROTAMITON [Concomitant]
  4. FUROSEMIDE [Concomitant]

REACTIONS (3)
  - Rash pruritic [None]
  - Dermatitis allergic [None]
  - Rash pruritic [None]
